FAERS Safety Report 12760692 (Version 1)
Quarter: 2016Q3

REPORT INFORMATION
  Report Type: Report from Study
  Country: DE (occurrence: DE)
  Receive Date: 20160919
  Receipt Date: 20160919
  Transmission Date: 20161109
  Serious: Yes (Hospitalization)
  Sender: FDA-Public Use
  Company Number: US-ASTRAZENECA-2016SE99622

PATIENT
  Age: 189 Day
  Sex: Male

DRUGS (3)
  1. SYNAGIS [Suspect]
     Active Substance: PALIVIZUMAB
     Indication: NEUROMYOPATHY
     Route: 030
     Dates: start: 20100215, end: 20100215
  2. SYNAGIS [Suspect]
     Active Substance: PALIVIZUMAB
     Indication: NEUROMYOPATHY
     Route: 030
     Dates: start: 20100317, end: 20100317
  3. SYNAGIS [Suspect]
     Active Substance: PALIVIZUMAB
     Indication: NEUROMYOPATHY
     Route: 030
     Dates: start: 20091118, end: 20091118

REACTIONS (1)
  - Bronchitis [Recovered/Resolved]

NARRATIVE: CASE EVENT DATE: 20100323
